FAERS Safety Report 13379485 (Version 1)
Quarter: 2017Q1

REPORT INFORMATION
  Report Type: Spontaneous
  Country: US (occurrence: US)
  Receive Date: 20170328
  Receipt Date: 20170328
  Transmission Date: 20170429
  Serious: No
  Sender: FDA-Public Use
  Company Number: US-SHIRE-US201706601

PATIENT
  Sex: Female

DRUGS (1)
  1. XIIDRA [Suspect]
     Active Substance: LIFITEGRAST
     Indication: DRY EYE
     Dosage: 1 GTT, UNKNOWN
     Route: 047
     Dates: start: 2016

REACTIONS (7)
  - Corneal reflex decreased [Unknown]
  - Instillation site reaction [Recovered/Resolved]
  - Instillation site pain [Recovered/Resolved]
  - Drug ineffective [Unknown]
  - Instillation site dryness [Unknown]
  - Instillation site discomfort [Unknown]
  - Incorrect dose administered [Unknown]
